FAERS Safety Report 5028975-0 (Version None)
Quarter: 2006Q2

REPORT INFORMATION
  Report Type: 
  Country: None (occurrence: None)
  Receive Date: 20060619
  Receipt Date: 20060612
  Transmission Date: 20061013
  Serious: Yes (Hospitalization)
  Sender: FDA-Public Use
  Company Number: PL-SANOFI-SYNTHELABO-A01200604470

PATIENT
  Age: 50 Year
  Sex: Male

DRUGS (3)
  1. ORNITHINE [Concomitant]
  2. PREDNISONE [Concomitant]
  3. CHLOROQUINE PHOSPHATE [Suspect]

REACTIONS (10)
  - HEADACHE [None]
  - HEPATIC STEATOSIS [None]
  - HEPATOCELLULAR DAMAGE [None]
  - HEPATOMEGALY [None]
  - HEPATOTOXICITY [None]
  - HYPERTRICHOSIS [None]
  - NAUSEA [None]
  - PORPHYRINS URINE INCREASED [None]
  - PYREXIA [None]
  - VOMITING [None]
